FAERS Safety Report 21064741 (Version 9)
Quarter: 2022Q4

REPORT INFORMATION
  Report Type: Report from Study
  Country: US (occurrence: US)
  Receive Date: 20220711
  Receipt Date: 20221214
  Transmission Date: 20230113
  Serious: Yes (Other)
  Sender: FDA-Public Use
  Company Number: US-NOVARTISTESTPH-NVSC2022US156081

PATIENT
  Sex: Male

DRUGS (2)
  1. ENTRESTO [Suspect]
     Active Substance: SACUBITRIL\VALSARTAN
     Indication: Product used for unknown indication
     Dosage: 0.5 DOSAGE FORM, BID (24/26 MG)
     Route: 065
     Dates: start: 20220608
  2. ENTRESTO [Suspect]
     Active Substance: SACUBITRIL\VALSARTAN
     Dosage: 50 MG, BID (24/26 MG)
     Route: 065

REACTIONS (18)
  - Thrombosis [Recovering/Resolving]
  - Peripheral swelling [Not Recovered/Not Resolved]
  - Weight fluctuation [Not Recovered/Not Resolved]
  - Chest pain [Recovered/Resolved]
  - Dry throat [Not Recovered/Not Resolved]
  - Throat clearing [Unknown]
  - Back pain [Unknown]
  - Cough [Not Recovered/Not Resolved]
  - Fatigue [Recovering/Resolving]
  - Pain [Unknown]
  - Rash [Unknown]
  - Insomnia [Unknown]
  - Hypertension [Recovering/Resolving]
  - Depressed mood [Unknown]
  - Prescribed underdose [Unknown]
  - Hypotension [Recovering/Resolving]
  - Wrong technique in product usage process [Recovered/Resolved]
  - Inappropriate schedule of product administration [Recovering/Resolving]

NARRATIVE: CASE EVENT DATE: 20220101
